FAERS Safety Report 18980352 (Version 10)
Quarter: 2022Q2

REPORT INFORMATION
  Report Type: Report from Study
  Country: GB (occurrence: GB)
  Receive Date: 20210308
  Receipt Date: 20220401
  Transmission Date: 20220721
  Serious: Yes (Hospitalization, Other)
  Sender: FDA-Public Use
  Company Number: None

PATIENT
  Age: 45 Year
  Sex: Female

DRUGS (33)
  1. DOCETAXEL [Suspect]
     Active Substance: DOCETAXEL
     Indication: Breast cancer metastatic
     Dosage: 140 MG, Q3W
     Route: 042
     Dates: start: 20160316
  2. TRASTUZUMAB [Suspect]
     Active Substance: TRASTUZUMAB
     Indication: Breast cancer metastatic
     Dosage: 577.5 MG, Q3W LOADING DOSE (8 MG/KG)
     Route: 042
     Dates: start: 20160317, end: 20160317
  3. TRASTUZUMAB [Suspect]
     Active Substance: TRASTUZUMAB
     Dosage: 430.5 MG, Q3W MAINTENANCE DOSE (6 MG/KG
     Route: 042
     Dates: start: 20160406, end: 20160406
  4. PERTUZUMAB [Suspect]
     Active Substance: PERTUZUMAB
     Indication: Breast cancer metastatic
     Dosage: 840 MG, Q3W
     Route: 042
     Dates: start: 20160317, end: 20160317
  5. PERTUZUMAB [Suspect]
     Active Substance: PERTUZUMAB
     Dosage: 420 MG, Q3W MAINTENANCE DOSE
     Route: 042
     Dates: start: 20160406, end: 20160406
  6. CHOLECALCIFEROL [Concomitant]
     Active Substance: CHOLECALCIFEROL
     Dosage: 800 IU, QD
     Route: 048
     Dates: start: 20160330
  7. DEXAMETHASONE [Concomitant]
     Active Substance: DEXAMETHASONE
     Indication: Prophylaxis
     Dosage: 8 MG, QD
     Route: 048
     Dates: start: 20160317, end: 20160320
  8. DEXAMETHASONE [Concomitant]
     Active Substance: DEXAMETHASONE
     Indication: Dizziness
     Dosage: 8 MG, QD
     Route: 048
     Dates: start: 20160407
  9. DEXAMETHASONE [Concomitant]
     Active Substance: DEXAMETHASONE
     Dosage: 1 MG, QD
     Route: 048
     Dates: start: 20160416
  10. DEXAMETHASONE [Concomitant]
     Active Substance: DEXAMETHASONE
     Dosage: 2 MG
     Route: 048
     Dates: start: 20170918
  11. DEXAMETHASONE [Concomitant]
     Active Substance: DEXAMETHASONE
     Dosage: 4 MG
     Route: 048
     Dates: start: 20170914, end: 20170917
  12. DEXAMETHASONE [Concomitant]
     Active Substance: DEXAMETHASONE
     Dosage: 4 MG, QD
     Route: 048
     Dates: start: 20170830, end: 20170914
  13. DEXAMETHASONE [Concomitant]
     Active Substance: DEXAMETHASONE
     Dosage: 8 MG, QD
     Route: 048
     Dates: start: 20170913, end: 20170913
  14. FILGRASTIM [Concomitant]
     Active Substance: FILGRASTIM
     Indication: Product used for unknown indication
     Dosage: 300 UG
     Route: 058
     Dates: start: 20160317, end: 20160321
  15. FILGRASTIM [Concomitant]
     Active Substance: FILGRASTIM
     Dosage: 300 UG
     Route: 058
     Dates: start: 20160407
  16. CALCIUM CARBONATE\CHOLECALCIFEROL [Concomitant]
     Active Substance: CALCIUM CARBONATE\CHOLECALCIFEROL
     Indication: Prophylaxis
     Dosage: 1 DF, QD
     Route: 048
     Dates: start: 20160317
  17. ACETAMINOPHEN [Concomitant]
     Active Substance: ACETAMINOPHEN
     Indication: Bone pain
     Dosage: 1 G
     Route: 048
  18. METOCLOPRAMIDE [Concomitant]
     Active Substance: METOCLOPRAMIDE
     Indication: Prophylaxis
     Dosage: 10 MG
     Route: 042
     Dates: start: 20160316, end: 20160316
  19. METOCLOPRAMIDE [Concomitant]
     Active Substance: METOCLOPRAMIDE
     Dosage: 10 MG
     Route: 048
     Dates: start: 20170201
  20. CYCLIZINE [Concomitant]
     Active Substance: CYCLIZINE
     Dosage: 50 MG,0.33 DAY
     Route: 042
     Dates: start: 20160406, end: 20160406
  21. CYCLIZINE [Concomitant]
     Active Substance: CYCLIZINE
     Dosage: 50 MG, QD
     Route: 048
  22. ZOLEDRONIC ACID [Concomitant]
     Active Substance: ZOLEDRONIC ACID
     Dosage: 4 MG, Q3W
     Route: 042
     Dates: start: 20160317
  23. COCODAMOL [Concomitant]
     Active Substance: ACETAMINOPHEN\CODEINE PHOSPHATE
     Indication: Bone pain
     Dosage: 30 MG
     Route: 048
  24. DENOSUMAB [Concomitant]
     Active Substance: DENOSUMAB
     Dosage: 120 MG, QM
     Route: 042
     Dates: start: 20160727
  25. NEFOPAM [Concomitant]
     Active Substance: NEFOPAM
     Dosage: 30 MG, QD
     Route: 048
     Dates: start: 20160907
  26. VITAMIN B6 [Concomitant]
     Active Substance: PYRIDOXINE HYDROCHLORIDE
     Dosage: 1.3 MG, QD
     Route: 048
     Dates: start: 20170215
  27. BUTYLSCOPOLAMINE BROMIDE [Concomitant]
     Active Substance: BUTYLSCOPOLAMINE BROMIDE
     Dosage: 10 MG
     Route: 048
     Dates: start: 20170201
  28. GABAPENTIN [Concomitant]
     Active Substance: GABAPENTIN
     Dosage: 300 MG
     Route: 048
     Dates: start: 20170215
  29. AMITRIPTYLINE [Concomitant]
     Active Substance: AMITRIPTYLINE
     Dosage: 25 MG
     Route: 048
     Dates: start: 20170215
  30. DERMOL [BENZALKONIUM CHLORIDE;CHLORHEXIDINE HYDROCHLORIDE;ISOPROPYL MY [Concomitant]
     Indication: Dermatitis
     Dosage: UNK
     Route: 061
     Dates: start: 20160330
  31. DICLOFENAC [Concomitant]
     Active Substance: DICLOFENAC
     Indication: Bone pain
     Dosage: 75 MG, QD
     Route: 048
  32. DICLOFENAC [Concomitant]
     Active Substance: DICLOFENAC
     Dosage: 150 MG, QD
     Route: 048
  33. PYRIDOXINE [Concomitant]
     Active Substance: PYRIDOXINE
     Dosage: 1.3 MG, QD
     Route: 065
     Dates: start: 20170215

REACTIONS (10)
  - Naevus haemorrhage [Unknown]
  - Nasal discomfort [Not Recovered/Not Resolved]
  - Mouth ulceration [Recovering/Resolving]
  - Acute kidney injury [Recovered/Resolved]
  - Sepsis [Recovered/Resolved]
  - Vomiting [Recovered/Resolved]
  - Urinary tract infection [Recovered/Resolved]
  - Diarrhoea [Recovered/Resolved]
  - Dermatitis [Recovered/Resolved]
  - Bone pain [Not Recovered/Not Resolved]

NARRATIVE: CASE EVENT DATE: 20160330
